FAERS Safety Report 5657329-9 (Version None)
Quarter: 2008Q1

REPORT INFORMATION
  Report Type: 
  Country: None (occurrence: None)
  Receive Date: 20080310
  Receipt Date: 20080228
  Transmission Date: 20080703
  Serious: Yes (Hospitalization, Other)
  Sender: FDA-Public Use
  Company Number: PHBS2008GB02900

PATIENT
  Age: 24 Year
  Sex: Female

DRUGS (8)
  1. HYDRALAZINE HCL [Suspect]
     Indication: HYPERTENSION
  2. NIFEDIPINE [Concomitant]
     Indication: HYPERTENSION
  3. STEROIDS NOS [Concomitant]
  4. PREDNISOLONE [Concomitant]
     Indication: ASTHMA
     Dosage: 40 MG/DAY
  5. ALBUTEROL [Concomitant]
     Indication: DYSPNOEA
  6. ANESTHETICS NOS [Concomitant]
  7. METHYLDOPA [Concomitant]
  8. LABETALOL HCL [Concomitant]

REACTIONS (7)
  - CAESAREAN SECTION [None]
  - DRUG EXPOSURE DURING PREGNANCY [None]
  - DYSPNOEA [None]
  - PRE-ECLAMPSIA [None]
  - PREMATURE LABOUR [None]
  - PULMONARY OEDEMA [None]
  - SURGERY [None]
